FAERS Safety Report 11997458 (Version 7)
Quarter: 2017Q4

REPORT INFORMATION
  Report Type: Report from Study
  Country: JP (occurrence: JP)
  Receive Date: 20160203
  Receipt Date: 20171012
  Transmission Date: 20180320
  Serious: Yes (Other)
  Sender: FDA-Public Use
  Company Number: JP-AMGEN-JPNCT2014054221

PATIENT
  Age: 48 Year
  Sex: Male
  Weight: 62 kg

DRUGS (37)
  1. ROMIPLOSTIM [Suspect]
     Active Substance: ROMIPLOSTIM
     Dosage: 9 MUG/KG, QWK
     Route: 058
     Dates: start: 20130316
  2. TAKEPRON [Concomitant]
     Active Substance: LANSOPRAZOLE
     Indication: GASTRITIS
     Dosage: UNK
     Route: 048
  3. HERBESSER [Concomitant]
     Active Substance: DILTIAZEM HYDROCHLORIDE
     Indication: TACHYCARDIA
     Dosage: UNK
     Route: 048
  4. ROCALTROL [Concomitant]
     Active Substance: CALCITRIOL
     Indication: PROPHYLAXIS
     Dosage: UNK
     Route: 048
  5. PREDNISOLONE. [Suspect]
     Active Substance: PREDNISOLONE
     Dosage: 10 MG, UNK
     Route: 048
     Dates: start: 20120401
  6. ROMIPLOSTIM [Suspect]
     Active Substance: ROMIPLOSTIM
     Indication: IMMUNE THROMBOCYTOPENIC PURPURA
     Dosage: 1 MUG/KG, QD
     Route: 058
     Dates: start: 20110416, end: 20110416
  7. ROMIPLOSTIM [Suspect]
     Active Substance: ROMIPLOSTIM
     Dosage: 3 MUG/KG, QD
     Route: 058
     Dates: start: 20110422, end: 20110422
  8. ROMIPLOSTIM [Suspect]
     Active Substance: ROMIPLOSTIM
     Dosage: 10 MUG/KG, QWK
     Route: 058
     Dates: start: 20110521, end: 20120421
  9. ROMIPLOSTIM [Suspect]
     Active Substance: ROMIPLOSTIM
     Dosage: UNK
     Route: 058
     Dates: start: 20130301
  10. ROMIPLOSTIM [Suspect]
     Active Substance: ROMIPLOSTIM
     Dosage: UNK
     Route: 058
     Dates: start: 20130413
  11. MARZULENE-S [Concomitant]
     Active Substance: SODIUM GUALENATE
     Indication: GASTRITIS
     Dosage: UNK
     Route: 048
  12. METHYCOBAL [Concomitant]
     Active Substance: METHYLCOBALAMIN
     Indication: PROPHYLAXIS
     Dosage: UNK
     Route: 065
  13. PL [Concomitant]
     Active Substance: ACETAMINOPHEN\CAFFEINE\PROMETHAZINE\SALICYLAMIDE
     Indication: VIRAL UPPER RESPIRATORY TRACT INFECTION
     Dosage: UNK
     Route: 048
  14. FERROMIA [Concomitant]
     Active Substance: SODIUM FERROUS CITRATE
     Indication: PROPHYLAXIS
     Dosage: UNK
     Route: 048
  15. ROMIPLOSTIM [Suspect]
     Active Substance: ROMIPLOSTIM
     Dosage: 7 MUG/KG, QWK
     Route: 058
     Dates: start: 20121201, end: 20130308
  16. ROMIPLOSTIM [Suspect]
     Active Substance: ROMIPLOSTIM
     Dosage: 4 MUG/KG, QD
     Route: 058
     Dates: start: 20110430, end: 20110430
  17. ROMIPLOSTIM [Suspect]
     Active Substance: ROMIPLOSTIM
     Dosage: 6 MUG/KG, QD
     Route: 058
     Dates: start: 20110507, end: 20110507
  18. ROMIPLOSTIM [Suspect]
     Active Substance: ROMIPLOSTIM
     Dosage: UNK
     Route: 058
     Dates: start: 20130308
  19. ROMIPLOSTIM [Suspect]
     Active Substance: ROMIPLOSTIM
     Dosage: UNK
     Route: 058
     Dates: start: 20130323
  20. ADONA [Concomitant]
     Active Substance: CARBAZOCHROME SODIUM SULFONATE
     Indication: IMMUNE THROMBOCYTOPENIC PURPURA
     Dosage: 90 MG, UNK
     Route: 048
     Dates: start: 20110416
  21. ASTOMIN [Concomitant]
     Active Substance: DIMEMORFAN
     Indication: VIRAL UPPER RESPIRATORY TRACT INFECTION
     Dosage: UNK
     Route: 048
  22. TRANSAMIN [Concomitant]
     Active Substance: TRANEXAMIC ACID
     Indication: VIRAL UPPER RESPIRATORY TRACT INFECTION
     Dosage: 750 MG, UNK
     Route: 048
     Dates: start: 20120925
  23. ROMIPLOSTIM [Suspect]
     Active Substance: ROMIPLOSTIM
     Dosage: 3 MUG/KG, UNK
     Route: 058
     Dates: start: 20120929, end: 20120929
  24. ROMIPLOSTIM [Suspect]
     Active Substance: ROMIPLOSTIM
     Dosage: UNK
     Route: 058
     Dates: start: 20130313
  25. PARIET [Concomitant]
     Active Substance: RABEPRAZOLE SODIUM
     Indication: GASTRITIS
     Dosage: UNK
     Route: 048
  26. PROCTOSEDYL [Concomitant]
     Active Substance: DIBUCAINE HYDROCHLORIDE\HYDROCORTISONE
     Indication: HAEMORRHOIDS
     Dosage: UNK
     Route: 061
  27. ROMIPLOSTIM [Suspect]
     Active Substance: ROMIPLOSTIM
     Dosage: 5 MUG/KG, QWK
     Route: 058
     Dates: start: 20121006, end: 20121122
  28. ROMIPLOSTIM [Suspect]
     Active Substance: ROMIPLOSTIM
     Dosage: UNK
     Route: 058
     Dates: start: 20130209
  29. ROMIPLOSTIM [Suspect]
     Active Substance: ROMIPLOSTIM
     Dosage: UNK
     Route: 058
     Dates: start: 20130223
  30. FOLIAMIN [Concomitant]
     Active Substance: FOLIC ACID
     Indication: PROPHYLAXIS
     Dosage: UNK
     Route: 065
  31. ROMIPLOSTIM [Suspect]
     Active Substance: ROMIPLOSTIM
     Dosage: 8 MUG/KG, QD
     Route: 058
     Dates: start: 20110513, end: 20110513
  32. PREDNISOLONE. [Suspect]
     Active Substance: PREDNISOLONE
     Indication: IMMUNE THROMBOCYTOPENIC PURPURA
     Dosage: 10 MG/BODY, UNK
     Route: 048
     Dates: start: 20110416, end: 20120127
  33. PREDNISOLONE. [Suspect]
     Active Substance: PREDNISOLONE
     Dosage: 15 MG, UNK
     Route: 048
     Dates: start: 20120128, end: 20120331
  34. CINAL [Concomitant]
     Active Substance: ASCORBIC ACID\CALCIUM PANTOTHENATE
     Indication: IMMUNE THROMBOCYTOPENIC PURPURA
     Dosage: 2000 MG, UNK
     Route: 048
     Dates: start: 20110416
  35. ZITHROMAC [Concomitant]
     Active Substance: AZITHROMYCIN DIHYDRATE
     Indication: VIRAL UPPER RESPIRATORY TRACT INFECTION
     Dosage: UNK
     Route: 065
  36. MUCODYNE [Concomitant]
     Active Substance: CARBOCYSTEINE
     Indication: BRONCHITIS
     Dosage: UNK
     Route: 048
  37. EMPYNASE [Concomitant]
     Active Substance: PANCRELIPASE
     Indication: BRONCHITIS
     Dosage: UNK
     Route: 048

REACTIONS (10)
  - Retinal haemorrhage [Recovering/Resolving]
  - White blood cell count increased [Not Recovered/Not Resolved]
  - Bronchitis [Recovered/Resolved]
  - Haemorrhoids [Not Recovered/Not Resolved]
  - Anaemia [Recovering/Resolving]
  - Gastroenteritis viral [Recovered/Resolved]
  - Cataract [Not Recovered/Not Resolved]
  - Nasopharyngitis [Recovered/Resolved]
  - Palpitations [Recovered/Resolved]
  - Infected dermal cyst [Recovered/Resolved]

NARRATIVE: CASE EVENT DATE: 20110507
